FAERS Safety Report 19219437 (Version 1)
Quarter: 2021Q2

REPORT INFORMATION
  Report Type: Spontaneous
  Country: US (occurrence: US)
  Receive Date: 20210506
  Receipt Date: 20210506
  Transmission Date: 20210717
  Serious: No
  Sender: FDA-Public Use
  Company Number: US-ROCHE-2639038

PATIENT
  Sex: Male

DRUGS (1)
  1. ESBRIET [Suspect]
     Active Substance: PIRFENIDONE
     Indication: IDIOPATHIC PULMONARY FIBROSIS
     Dosage: THERAPY STATUS:ONGOING:YES
     Route: 048
     Dates: start: 20200408

REACTIONS (3)
  - Salivary hypersecretion [Unknown]
  - Pain in extremity [Unknown]
  - Arthralgia [Unknown]
